FAERS Safety Report 19559881 (Version 12)
Quarter: 2022Q1

REPORT INFORMATION
  Report Type: Spontaneous
  Country: US (occurrence: US)
  Receive Date: 20210715
  Receipt Date: 20220128
  Transmission Date: 20220423
  Serious: Yes (Other)
  Sender: FDA-Public Use
  Company Number: US-BIOVITRUM-2021US6714

PATIENT
  Sex: Female

DRUGS (7)
  1. DOPTELET [Suspect]
     Active Substance: AVATROMBOPAG MALEATE
     Indication: Immune thrombocytopenia
     Route: 048
     Dates: start: 20210615
  2. DOPTELET [Suspect]
     Active Substance: AVATROMBOPAG MALEATE
     Route: 048
     Dates: start: 20210616
  3. DOPTELET [Suspect]
     Active Substance: AVATROMBOPAG MALEATE
     Route: 048
     Dates: start: 20210619
  4. CALCIUM PILL [Concomitant]
  5. UNSPECIFIED INGREDIENT [Concomitant]
     Active Substance: UNSPECIFIED INGREDIENT
  6. THYROID PILL [Concomitant]
  7. BLOOD PILL [Concomitant]

REACTIONS (30)
  - Mental impairment [Unknown]
  - Restlessness [Unknown]
  - Discharge [Unknown]
  - Pyrexia [Unknown]
  - Oral herpes [Unknown]
  - Chronic obstructive pulmonary disease [Unknown]
  - Condition aggravated [Unknown]
  - Eye colour change [Unknown]
  - Jaundice [Unknown]
  - Fluid retention [Unknown]
  - Poor peripheral circulation [Unknown]
  - Unevaluable event [Unknown]
  - Swelling [Not Recovered/Not Resolved]
  - Confusional state [Not Recovered/Not Resolved]
  - Superficial vein prominence [Unknown]
  - Nasal polyps [Unknown]
  - Neuralgia [Unknown]
  - Gait disturbance [Unknown]
  - Pain in extremity [Unknown]
  - Myalgia [Unknown]
  - Hypoaesthesia [Unknown]
  - Platelet count decreased [Unknown]
  - Asthenia [Not Recovered/Not Resolved]
  - Pain [Not Recovered/Not Resolved]
  - Vision blurred [Not Recovered/Not Resolved]
  - Dyspnoea [Not Recovered/Not Resolved]
  - Muscle spasms [Unknown]
  - Vision blurred [Unknown]
  - Fatigue [Not Recovered/Not Resolved]
  - Product dose omission issue [Unknown]
